FAERS Safety Report 10593846 (Version 2)
Quarter: 2015Q1

REPORT INFORMATION
  Report Type: Spontaneous
  Country: US (occurrence: US)
  Receive Date: 20141119
  Receipt Date: 20150204
  Transmission Date: 20150720
  Serious: No
  Sender: FDA-Public Use
  Company Number: US-GLAXOSMITHKLINE-US2014GSK023149

PATIENT
  Sex: Female

DRUGS (4)
  1. LETAIRIS [Concomitant]
     Active Substance: AMBRISENTAN
  2. FLOLAN [Suspect]
     Active Substance: EPOPROSTENOL SODIUM
     Dosage: 32 NG/KG/MIN CONTINUOUS; CONCENTRATION: 60,000 NG/ML; PUMP RATE: 91 ML/DAY; VIAL STRENGTH: 1.5 MG
     Route: 042
     Dates: start: 20040717
  3. FLOLAN [Suspect]
     Active Substance: EPOPROSTENOL SODIUM
     Indication: PULMONARY ARTERIAL HYPERTENSION
     Dosage: 32NG/KG/MIN, CONTINUOUSLY
     Route: 042
     Dates: start: 20040717
  4. REVATIO [Concomitant]
     Active Substance: SILDENAFIL CITRATE

REACTIONS (2)
  - Malaise [Unknown]
  - Aphonia [Unknown]
